FAERS Safety Report 6167428-3 (Version None)
Quarter: 2009Q2

REPORT INFORMATION
  Report Type: 
  Country: None (occurrence: None)
  Receive Date: 20090424
  Receipt Date: 20090417
  Transmission Date: 20091009
  Serious: Yes (Other)
  Sender: FDA-Public Use
  Company Number: PHEH2009US03846

PATIENT
  Sex: Female
  Weight: 69.841 kg

DRUGS (4)
  1. RECLAST [Suspect]
     Indication: OSTEOPOROSIS POSTMENOPAUSAL
     Dosage: 5 MG, YEARLY
     Route: 042
     Dates: start: 20081027
  2. CALCIUM WITH VITAMIN D [Concomitant]
  3. NASONEX [Concomitant]
  4. LISINOPRIL [Concomitant]

REACTIONS (6)
  - BLOOD CALCIUM DECREASED [None]
  - BONE PAIN [None]
  - CREATININE RENAL CLEARANCE DECREASED [None]
  - MYALGIA [None]
  - NAUSEA [None]
  - NECK PAIN [None]
